FAERS Safety Report 4322774-0 (Version None)
Quarter: 2004Q1

REPORT INFORMATION
  Report Type: 
  Country: None (occurrence: None)
  Receive Date: 20040324
  Receipt Date: 20040219
  Transmission Date: 20041129
  Serious: Yes (Other)
  Sender: FDA-Public Use
  Company Number: FR-ROCHE-359444

PATIENT
  Age: 55 Year
  Sex: Male

DRUGS (6)
  1. PEGASYS [Suspect]
     Indication: DRUG USE FOR UNKNOWN INDICATION
     Route: 058
  2. PEGASYS [Suspect]
     Dosage: OVERALL TREATMENT DURATION WITH PEG-INTERFERON ALFA-2A REPORTED TO BE SEVEN MONTHS PRIOR TO THE ONS+
     Route: 058
     Dates: start: 20040129
  3. COPEGUS [Interacting]
     Indication: DRUG USE FOR UNKNOWN INDICATION
     Route: 048
  4. ZYLORIC [Interacting]
     Indication: HYPERURICAEMIA
     Route: 065
  5. AMANTADINE HCL [Concomitant]
     Indication: DRUG USE FOR UNKNOWN INDICATION
     Route: 065
  6. DEROXAT [Concomitant]
     Indication: DRUG USE FOR UNKNOWN INDICATION
     Route: 065

REACTIONS (2)
  - ALANINE AMINOTRANSFERASE INCREASED [None]
  - DRUG INTERACTION [None]
